FAERS Safety Report 6876705-X (Version None)
Quarter: 2010Q3

REPORT INFORMATION
  Report Type: 
  Country: None (occurrence: None)
  Receive Date: 20100727
  Receipt Date: 20100713
  Transmission Date: 20110219
  Serious: Yes (Hospitalization)
  Sender: FDA-Public Use
  Company Number: US-MYLANLABS-2010S1012425

PATIENT
  Age: 59 Year
  Sex: Female

DRUGS (13)
  1. FENTANYL [Interacting]
     Indication: GENERAL ANAESTHESIA
     Dosage: 250MCG IN DIVIDED DOSES BETWEEN 8AM AND 11AM
     Route: 042
  2. ESCITALOPRAM [Interacting]
     Route: 065
  3. TRAZODONE [Suspect]
     Route: 065
  4. INSULIN [Concomitant]
     Route: 065
  5. GABAPENTIN [Concomitant]
     Route: 065
  6. LANSOPRAZOLE [Concomitant]
     Route: 065
  7. LORAZEPAM [Concomitant]
     Route: 065
  8. OXYCODONE [Concomitant]
     Route: 065
  9. CETIRIZINE HCL [Concomitant]
     Route: 065
  10. ETOMIDATE [Concomitant]
     Route: 065
  11. VECURONIUM BROMIDE [Concomitant]
     Route: 065
  12. MORPHINE [Concomitant]
     Route: 065
  13. CEFAZOLIN [Concomitant]
     Route: 065

REACTIONS (2)
  - DRUG INTERACTION [None]
  - SEROTONIN SYNDROME [None]
